FAERS Safety Report 16852985 (Version 1)
Quarter: 2019Q3

REPORT INFORMATION
  Report Type: Spontaneous
  Country: JP (occurrence: JP)
  Receive Date: 20190925
  Receipt Date: 20190925
  Transmission Date: 20191005
  Serious: Yes (Other)
  Sender: FDA-Public Use
  Company Number: JP-OTSUKA-2019_032856

PATIENT
  Age: 45 Year
  Sex: Female

DRUGS (8)
  1. BUSULFEX [Suspect]
     Active Substance: BUSULFAN
     Indication: BONE MARROW CONDITIONING REGIMEN
     Dosage: UNK
     Route: 065
  2. RUXOLITINIB PHOSPHATE [Suspect]
     Active Substance: RUXOLITINIB PHOSPHATE
     Dosage: 10 MG, DAILY DOSE
     Route: 065
  3. FLUDARABINE PHOSPHATE. [Suspect]
     Active Substance: FLUDARABINE PHOSPHATE
     Indication: BONE MARROW CONDITIONING REGIMEN
     Dosage: UNK
     Route: 065
  4. RUXOLITINIB PHOSPHATE [Suspect]
     Active Substance: RUXOLITINIB PHOSPHATE
     Indication: GRAFT VERSUS HOST DISEASE IN GASTROINTESTINAL TRACT
     Dosage: 5 MG, DAILY DOSE
     Route: 065
  5. FOSCAVIR [Suspect]
     Active Substance: FOSCARNET SODIUM
     Indication: CYTOMEGALOVIRUS TEST POSITIVE
     Dosage: UNK
     Route: 065
  6. TACROLIMUS MONOHYDRATE [Suspect]
     Active Substance: TACROLIMUS
     Indication: PROPHYLAXIS AGAINST GRAFT VERSUS HOST DISEASE
     Dosage: UNK
     Route: 065
  7. ANTITHYMOCYTE IMMUNOGLOBULIN (RABBIT) [Suspect]
     Active Substance: LAPINE T-LYMPHOCYTE IMMUNE GLOBULIN
     Indication: GRAFT VERSUS HOST DISEASE IN GASTROINTESTINAL TRACT
     Dosage: 2 MG/KG, UNK
     Route: 065
  8. METHOTREXATE. [Suspect]
     Active Substance: METHOTREXATE
     Indication: PROPHYLAXIS AGAINST GRAFT VERSUS HOST DISEASE
     Dosage: UNK
     Route: 065

REACTIONS (8)
  - Viral haemorrhagic cystitis [Unknown]
  - Bronchopulmonary aspergillosis [Unknown]
  - Opportunistic infection [Unknown]
  - Cytomegalovirus test positive [Unknown]
  - Neutrophil count decreased [Unknown]
  - Platelet count decreased [Unknown]
  - Cytomegalovirus enterocolitis [Unknown]
  - Incorrect product administration duration [Unknown]
